FAERS Safety Report 5710152-9 (Version None)
Quarter: 2008Q2

REPORT INFORMATION
  Report Type: 
  Country: None (occurrence: None)
  Receive Date: 20080418
  Receipt Date: 20080225
  Transmission Date: 20081010
  Serious: No
  Sender: FDA-Public Use
  Company Number: US-ASTRAZENECA-2008UW03921

PATIENT
  Age: 882 Month
  Sex: Female
  Weight: 72.6 kg

DRUGS (3)
  1. METOPROLOL SUCCINATE [Suspect]
     Indication: HYPERTENSION
     Route: 048
     Dates: start: 20070601
  2. HYZAAR [Concomitant]
  3. ESTRADIOL [Concomitant]

REACTIONS (3)
  - ABNORMAL DREAMS [None]
  - ALOPECIA [None]
  - INSOMNIA [None]
